FAERS Safety Report 7004407-8 (Version None)
Quarter: 2010Q3

REPORT INFORMATION
  Report Type: 
  Country: None (occurrence: None)
  Receive Date: 20100921
  Receipt Date: 20100910
  Transmission Date: 20110219
  Serious: No
  Sender: FDA-Public Use
  Company Number: US-BIOGENIDEC-2010BI031918

PATIENT
  Age: 42 Year
  Sex: Female

DRUGS (1)
  1. TYSABRI [Suspect]
     Indication: MULTIPLE SCLEROSIS
     Route: 042
     Dates: start: 20071213, end: 20090918

REACTIONS (6)
  - BALANCE DISORDER [None]
  - FATIGUE [None]
  - MOBILITY DECREASED [None]
  - MUSCLE SPASTICITY [None]
  - NEURALGIA [None]
  - VISUAL IMPAIRMENT [None]
